FAERS Safety Report 13913076 (Version 1)
Quarter: 2017Q3

REPORT INFORMATION
  Report Type: Spontaneous
  Country: US (occurrence: US)
  Receive Date: 20170828
  Receipt Date: 20170828
  Transmission Date: 20171127
  Serious: No
  Sender: FDA-Public Use
  Company Number: US-ROCHE-1124043

PATIENT
  Sex: Male

DRUGS (1)
  1. NUTROPIN AQ [Suspect]
     Active Substance: SOMATROPIN
     Indication: GROWTH HORMONE DEFICIENCY
     Dosage: 0.05MG/KG/WEEK
     Route: 058

REACTIONS (9)
  - Blood urine present [Unknown]
  - Pain in extremity [Unknown]
  - Skin irritation [Unknown]
  - Drug dose omission [Unknown]
  - Headache [Unknown]
  - Synovial cyst [Unknown]
  - Dry skin [Unknown]
  - Hyperkeratosis [Unknown]
  - Urine output increased [Unknown]
